FAERS Safety Report 5404920-0 (Version None)
Quarter: 2007Q3

REPORT INFORMATION
  Report Type: 
  Country: None (occurrence: None)
  Receive Date: 20070803
  Receipt Date: 20070730
  Transmission Date: 20080115
  Serious: Yes (Other)
  Sender: FDA-Public Use
  Company Number: US-BRISTOL-MYERS SQUIBB COMPANY-13863352

PATIENT
  Age: 34 Year
  Sex: Female

DRUGS (3)
  1. WARFARIN SODIUM [Interacting]
     Indication: PULMONARY EMBOLISM
  2. LEVOFLOXACIN [Interacting]
     Indication: URINARY TRACT INFECTION
  3. ENOXAPARIN SODIUM [Suspect]

REACTIONS (6)
  - ANAEMIA [None]
  - DRUG INTERACTION [None]
  - INTERNATIONAL NORMALISED RATIO INCREASED [None]
  - NEUROLEPTIC MALIGNANT SYNDROME [None]
  - RETROPERITONEAL HAEMATOMA [None]
  - URINARY TRACT INFECTION [None]
